FAERS Safety Report 6257355-5 (Version None)
Quarter: 2009Q3

REPORT INFORMATION
  Report Type: 
  Country: None (occurrence: None)
  Receive Date: 20090706
  Receipt Date: 20090625
  Transmission Date: 20100115
  Serious: Yes (Hospitalization)
  Sender: FDA-Public Use
  Company Number: PHHO2009DE07838

PATIENT
  Sex: Female
  Weight: 67 kg

DRUGS (4)
  1. RAD 666 RAD+TAB [Suspect]
     Indication: LIVER TRANSPLANT
     Dosage: OPEN-LABEL
     Route: 048
     Dates: start: 20090623, end: 20090625
  2. ZEFFIX [Concomitant]
  3. URSO FALK [Concomitant]
  4. PANTOZOL [Concomitant]

REACTIONS (2)
  - HEPATIC ENZYME ABNORMAL [None]
  - LIVER TRANSPLANT REJECTION [None]
